FAERS Safety Report 9450267 (Version 1)
Quarter: 2013Q3

REPORT INFORMATION
  Report Type: Spontaneous
  Country: CA (occurrence: None)
  Receive Date: 20130807
  Receipt Date: 20130807
  Transmission Date: 20140515
  Serious: Yes (Other)
  Sender: FDA-Public Use
  Company Number: VA;_00375_2010

PATIENT
  Sex: Female

DRUGS (3)
  1. ROCALTROL (ROCALTROL-CALCITROL) (NOT SPECIFIED) [Suspect]
     Indication: HYPOPARATHYROIDISM
     Route: 048
     Dates: start: 20091229
  2. ROCALTROL (ROCALTROL-CALCITROL) (NOT SPECIFIED) [Suspect]
     Indication: HYPOPARATHYROIDISM
     Route: 048
  3. SYNTHROID [Concomitant]

REACTIONS (19)
  - Pruritus [None]
  - Headache [None]
  - Agitation [None]
  - Nausea [None]
  - Urticaria [None]
  - Myalgia [None]
  - Arthralgia [None]
  - Pharyngeal oedema [None]
  - Hypoaesthesia oral [None]
  - Paraesthesia oral [None]
  - Muscular weakness [None]
  - Eyelid oedema [None]
  - Drug hypersensitivity [None]
  - Thermal burn [None]
  - Chest discomfort [None]
  - Dyspnoea [None]
  - Dyspepsia [None]
  - Pain in extremity [None]
  - Pain in extremity [None]
